FAERS Safety Report 7793149-7 (Version None)
Quarter: 2011Q4

REPORT INFORMATION
  Report Type: 
  Country: None (occurrence: None)
  Receive Date: 20111003
  Receipt Date: 20110927
  Transmission Date: 20120403
  Serious: Yes (Hospitalization)
  Sender: FDA-Public Use
  Company Number: US-VERTEX PHARMACEUTICALS INC.-AE-2011-001316

PATIENT
  Sex: Female
  Weight: 72.64 kg

DRUGS (5)
  1. PEGASYS [Concomitant]
     Indication: HEPATITIS C
     Route: 058
     Dates: start: 20110802, end: 20110830
  2. TRAMADOL HCL [Concomitant]
     Route: 048
  3. INCIVEK [Suspect]
     Indication: HEPATITIS C
     Route: 048
     Dates: start: 20110802, end: 20110831
  4. ZOLOFT [Concomitant]
     Route: 048
  5. RIBAVIRIN [Concomitant]
     Indication: HEPATITIS C
     Route: 048
     Dates: start: 20110802, end: 20110831

REACTIONS (6)
  - DEHYDRATION [None]
  - HEADACHE [None]
  - MALAISE [None]
  - GASTRIC ULCER [None]
  - NERVOUSNESS [None]
  - VOMITING [None]
